FAERS Safety Report 13209289 (Version 2)
Quarter: 2017Q1

REPORT INFORMATION
  Report Type: Spontaneous
  Country: DK (occurrence: DK)
  Receive Date: 20170209
  Receipt Date: 20170210
  Transmission Date: 20170428
  Serious: Yes (Hospitalization)
  Sender: FDA-Public Use
  Company Number: PHHY2017DK016416

PATIENT
  Age: 16 Year
  Sex: Female

DRUGS (1)
  1. MALONETTA [Suspect]
     Active Substance: ETHINYL ESTRADIOL\LEVONORGESTREL
     Indication: CONTRACEPTION
     Route: 048
     Dates: start: 20131211, end: 20141119

REACTIONS (6)
  - Stress [Unknown]
  - Chest pain [Recovered/Resolved]
  - Pulmonary thrombosis [Recovered/Resolved]
  - Chest discomfort [Recovered/Resolved]
  - Dyspnoea [Recovered/Resolved]
  - Pulmonary sensitisation [Not Recovered/Not Resolved]

NARRATIVE: CASE EVENT DATE: 201411
